FAERS Safety Report 23944596 (Version 1)
Quarter: 2024Q2

REPORT INFORMATION
  Report Type: Spontaneous
  Country: US (occurrence: US)
  Receive Date: 20240606
  Receipt Date: 20240606
  Transmission Date: 20240716
  Serious: Yes (Disabling)
  Sender: FDA-Public Use
  Company Number: US-PFIZER INC-PV202400071841

PATIENT
  Age: 69 Year
  Sex: Male
  Weight: 109.93 kg

DRUGS (1)
  1. TALZENNA [Suspect]
     Active Substance: TALAZOPARIB TOSYLATE
     Indication: Prostate cancer metastatic
     Dosage: 1 PO ON DAYS 1-28 EVERY 28 DAYS WITH OR WITHOUT FOOD
     Route: 048

REACTIONS (3)
  - Gait disturbance [Unknown]
  - Arthralgia [Unknown]
  - Spinal pain [Unknown]
